FAERS Safety Report 6443311-0 (Version None)
Quarter: 2009Q4

REPORT INFORMATION
  Report Type: 
  Country: None (occurrence: None)
  Receive Date: 20091117
  Receipt Date: 20091109
  Transmission Date: 20100525
  Serious: Yes (Life-Threatening, Hospitalization)
  Sender: FDA-Public Use
  Company Number: JP-ABBOTT-09P-087-0608347-00

PATIENT
  Age: 54 Year
  Sex: Male

DRUGS (6)
  1. SEVOFRANE [Suspect]
     Indication: INDUCTION OF ANAESTHESIA
     Route: 065
  2. PROPOFOL [Suspect]
     Indication: INDUCTION OF ANAESTHESIA
     Route: 065
  3. REMIFENTANIL [Concomitant]
     Indication: INDUCTION OF ANAESTHESIA
     Route: 065
  4. REMIFENTANIL [Concomitant]
     Indication: MAINTENANCE OF ANAESTHESIA
  5. VECURONIUM BROMIDE [Concomitant]
     Indication: INDUCTION OF ANAESTHESIA
     Route: 065
  6. OXYGEN [Concomitant]
     Indication: MAINTENANCE OF ANAESTHESIA
     Dosage: UNKNOWN

REACTIONS (3)
  - VENTRICULAR EXTRASYSTOLES [None]
  - VENTRICULAR FIBRILLATION [None]
  - VENTRICULAR TACHYCARDIA [None]
